FAERS Safety Report 5877220-2 (Version None)
Quarter: 2008Q3

REPORT INFORMATION
  Report Type: 
  Country: None (occurrence: None)
  Receive Date: 20080910
  Receipt Date: 20080830
  Transmission Date: 20090109
  Serious: Yes (Other)
  Sender: FDA-Public Use
  Company Number: US-PFIZER INC-2008068836

PATIENT
  Age: 50 Year
  Sex: Female
  Weight: 61.2 kg

DRUGS (2)
  1. CELEBREX [Suspect]
     Indication: ARTHRITIS
     Dates: start: 20071211
  2. SLO-MAG [Concomitant]

REACTIONS (4)
  - BLOOD PRESSURE DECREASED [None]
  - DYSPNOEA [None]
  - RASH [None]
  - URTICARIA [None]
